FAERS Safety Report 10797028 (Version 1)
Quarter: 2015Q1

REPORT INFORMATION
  Report Type: Report from Study
  Country: US (occurrence: US)
  Receive Date: 20150216
  Receipt Date: 20150216
  Transmission Date: 20150721
  Serious: No
  Sender: FDA-Public Use
  Company Number: US-ABBVIE-13P-163-1045140-00

PATIENT
  Sex: Female

DRUGS (2)
  1. HUMIRA [Suspect]
     Active Substance: ADALIMUMAB
     Indication: MATERNAL EXPOSURE TIMING UNSPECIFIED
     Route: 064
  2. HUMIRA [Suspect]
     Active Substance: ADALIMUMAB
     Route: 063
     Dates: start: 20130711, end: 201310

REACTIONS (5)
  - Foetal exposure during pregnancy [Unknown]
  - Exposure during breast feeding [Recovered/Resolved]
  - Jaundice [Recovered/Resolved]
  - Poor weight gain neonatal [Recovered/Resolved]
  - Premature baby [Not Recovered/Not Resolved]

NARRATIVE: CASE EVENT DATE: 20130711
